FAERS Safety Report 12336626 (Version 1)
Quarter: 2016Q2

REPORT INFORMATION
  Report Type: Spontaneous
  Country: US (occurrence: None)
  Receive Date: 20160504
  Receipt Date: 20160504
  Transmission Date: 20160815
  Serious: No
  Sender: FDA-Public Use
  Company Number: None

PATIENT
  Age: 71 Year
  Sex: Female
  Weight: 60.33 kg

DRUGS (2)
  1. ESOMEPRAZOLE MAGNESIUM D/R [Suspect]
     Active Substance: ESOMEPRAZOLE MAGNESIUM
     Indication: GASTROOESOPHAGEAL REFLUX DISEASE
     Dosage: 40MG 1 CAPSULE 1 HOUR AC BREAKFAST PO
     Route: 048
     Dates: start: 20160404, end: 20160411
  2. ESOMEPRAZOLE MAGNESIUM D/R [Suspect]
     Active Substance: ESOMEPRAZOLE MAGNESIUM
     Indication: IMPAIRED GASTRIC EMPTYING
     Dosage: 40MG 1 CAPSULE 1 HOUR AC BREAKFAST PO
     Route: 048
     Dates: start: 20160404, end: 20160411

REACTIONS (6)
  - Abdominal distension [None]
  - Oesophageal pain [None]
  - Product substitution issue [None]
  - Feeding disorder [None]
  - Abdominal pain upper [None]
  - Food intolerance [None]

NARRATIVE: CASE EVENT DATE: 20160407
